FAERS Safety Report 5050925-1 (Version None)
Quarter: 2006Q3

REPORT INFORMATION
  Report Type: 
  Country: None (occurrence: None)
  Receive Date: 20060710
  Receipt Date: 20060705
  Transmission Date: 20061208
  Serious: Yes (Hospitalization)
  Sender: FDA-Public Use
  Company Number: S06-FRA-00445-01

PATIENT
  Age: 21 Year
  Sex: Female

DRUGS (6)
  1. ESCITALOPRAM OXALATE [Suspect]
     Dosage: 20 MG QD PO
     Route: 048
  2. ESCITALOPRAM OXALATE [Suspect]
     Dosage: 40 MG QD PO
     Route: 048
  3. ESCITALOPRAM OXALATE [Suspect]
     Dosage: 20 MG QD PO
     Route: 048
  4. ARIPIPRAZOLE [Suspect]
     Indication: PSYCHOTIC DISORDER
     Dosage: 20 MG QD PO
     Route: 048
  5. HEPTAMINOL HYDROCHLORIDE [Concomitant]
  6. IMOVANE (ZOPICLONE) [Concomitant]

REACTIONS (3)
  - HYPOKALAEMIA [None]
  - PRESCRIBED OVERDOSE [None]
  - WEIGHT DECREASED [None]
